FAERS Safety Report 4575742-8 (Version None)
Quarter: 2005Q1

REPORT INFORMATION
  Report Type: 
  Country: None (occurrence: None)
  Receive Date: 20050127
  Receipt Date: 20041007
  Transmission Date: 20050727
  Serious: No
  Sender: FDA-Public Use
  Company Number: USA040979722

PATIENT
  Age: 22 Year
  Sex: Female

DRUGS (1)
  1. STRATTERA [Suspect]
     Indication: ATTENTION DEFICIT/HYPERACTIVITY DISORDER
     Dosage: 160 MG/1 IN THE MORNING
     Dates: start: 20040909

REACTIONS (6)
  - ABDOMINAL PAIN LOWER [None]
  - ACCIDENTAL OVERDOSE [None]
  - CHEST DISCOMFORT [None]
  - FEELING ABNORMAL [None]
  - MEDICATION ERROR [None]
  - NAUSEA [None]
